FAERS Safety Report 24148004 (Version 2)
Quarter: 2024Q3

REPORT INFORMATION
  Report Type: Spontaneous
  Country: CN (occurrence: CN)
  Receive Date: 20240729
  Receipt Date: 20240805
  Transmission Date: 20241017
  Serious: Yes (Other)
  Sender: MERCK
  Company Number: CN-009507513-2407CHN012903

PATIENT
  Age: 92 Year
  Sex: Male

DRUGS (2)
  1. CILASTATIN SODIUM\IMIPENEM [Suspect]
     Active Substance: CILASTATIN SODIUM\IMIPENEM
     Indication: Pneumonia
     Dosage: 500 MG, QID
     Route: 041
     Dates: start: 20240703, end: 20240712
  2. POLYMYXIN [Concomitant]
     Active Substance: POLYMYXIN

REACTIONS (6)
  - Drug effect less than expected [Unknown]
  - Tremor [Unknown]
  - Restlessness [Unknown]
  - Muscle twitching [Recovering/Resolving]
  - Staphylococcus test positive [Unknown]
  - Acinetobacter test positive [Unknown]

NARRATIVE: CASE EVENT DATE: 20240701
